FAERS Safety Report 23365983 (Version 2)
Quarter: 2024Q1

REPORT INFORMATION
  Report Type: Spontaneous
  Country: FR (occurrence: FR)
  Receive Date: 20240104
  Receipt Date: 20240313
  Transmission Date: 20240410
  Serious: Yes (Hospitalization, Other)
  Sender: FDA-Public Use
  Company Number: FR-SA-2024SA000240

PATIENT
  Age: 63 Year
  Sex: Female

DRUGS (5)
  1. DUPILUMAB [Suspect]
     Active Substance: DUPILUMAB
     Indication: Asthma
     Dosage: 300 MG, QOW
     Route: 058
     Dates: start: 202112, end: 2022
  2. OMALIZUMAB [Concomitant]
     Active Substance: OMALIZUMAB
     Indication: Asthma
     Dosage: UNK
  3. TRALOKINUMAB [Concomitant]
     Active Substance: TRALOKINUMAB
     Indication: Asthma
     Dosage: UNK
  4. MEPOLIZUMAB [Concomitant]
     Active Substance: MEPOLIZUMAB
     Indication: Asthma
     Dosage: UNK
  5. CORTICOSTEROID NOS [Concomitant]
     Active Substance: CORTICOSTEROID NOS
     Indication: Asthma
     Dosage: UNK

REACTIONS (10)
  - Eosinophilic granulomatosis with polyangiitis [Unknown]
  - Eosinophilia [Unknown]
  - Diplopia [Unknown]
  - Paraesthesia [Unknown]
  - Neuritis [Unknown]
  - Vasculitis [Unknown]
  - Arthralgia [Unknown]
  - Myalgia [Unknown]
  - Granuloma [Unknown]
  - Hypoaesthesia [Unknown]

NARRATIVE: CASE EVENT DATE: 20220101
